FAERS Safety Report 7440096-6 (Version None)
Quarter: 2011Q2

REPORT INFORMATION
  Report Type: 
  Country: None (occurrence: None)
  Receive Date: 20110427
  Receipt Date: 20110420
  Transmission Date: 20111010
  Serious: Yes (Death, Other)
  Sender: FDA-Public Use
  Company Number: US-CELGENEUS-163-21880-11042794

PATIENT
  Age: 69 Year
  Sex: Female

DRUGS (7)
  1. PEPCID [Concomitant]
     Route: 065
  2. EPOETIN [Concomitant]
     Route: 065
  3. REVLIMID [Suspect]
     Dosage: 5 MILLIGRAM
     Route: 048
     Dates: start: 20100601, end: 20100801
  4. RITUXAN [Concomitant]
     Route: 065
  5. REVLIMID [Suspect]
     Indication: MYELODYSPLASTIC SYNDROME
     Dosage: 5 MILLIGRAM
     Route: 048
     Dates: start: 20100601, end: 20100601
  6. LASIX [Concomitant]
     Route: 065
  7. ACYCLOVIR [Concomitant]
     Route: 065

REACTIONS (3)
  - DEATH [None]
  - PLATELET COUNT DECREASED [None]
  - FATIGUE [None]
